FAERS Safety Report 22243390 (Version 2)
Quarter: 2023Q2

REPORT INFORMATION
  Report Type: Spontaneous
  Country: US (occurrence: US)
  Receive Date: 20230424
  Receipt Date: 20230614
  Transmission Date: 20230721
  Serious: No
  Sender: FDA-Public Use
  Company Number: US-PFIZER INC-202300163650

PATIENT
  Sex: Female

DRUGS (1)
  1. ZARONTIN [Suspect]
     Active Substance: ETHOSUXIMIDE
     Dosage: 250 MG, 2X/DAY (TWO IN THE AM AND TWO IN THE EVENING)

REACTIONS (1)
  - Anxiety [Unknown]
